FAERS Safety Report 4311919-4 (Version None)
Quarter: 2004Q1

REPORT INFORMATION
  Report Type: 
  Country: None (occurrence: None)
  Receive Date: 20040305
  Receipt Date: 20040226
  Transmission Date: 20041129
  Serious: Yes (Other)
  Sender: FDA-Public Use
  Company Number: PHBS2004CO02848

PATIENT
  Age: 31 Year
  Sex: Female

DRUGS (2)
  1. SYNTOCINON [Suspect]
     Indication: LABOUR INDUCTION
     Route: 042
     Dates: start: 20031114, end: 20031114
  2. TRAMADOL HYDROCHLORIDE [Concomitant]

REACTIONS (13)
  - APGAR SCORE LOW [None]
  - CAESAREAN SECTION [None]
  - CHEST PAIN [None]
  - COMPLICATIONS OF MATERNAL EXPOSURE TO THERAPEUTIC DRUGS [None]
  - CONJUNCTIVAL HYPERAEMIA [None]
  - DYSPNOEA [None]
  - FOETAL DISTRESS SYNDROME [None]
  - FOETAL HEART RATE DECELERATION [None]
  - HYPOTENSION [None]
  - MATERNAL DRUGS AFFECTING FOETUS [None]
  - NORMAL NEWBORN [None]
  - OEDEMA [None]
  - RASH GENERALISED [None]
